FAERS Safety Report 20082561 (Version 1)
Quarter: 2021Q4

REPORT INFORMATION
  Report Type: Spontaneous
  Country: CN (occurrence: CN)
  Receive Date: 20211117
  Receipt Date: 20211117
  Transmission Date: 20220303
  Serious: Yes (Death, Life-Threatening, Other)
  Sender: FDA-Public Use
  Company Number: CN-NAPPMUNDI-GBR-2021-0092400

PATIENT
  Age: 57 Year
  Sex: Male
  Weight: 63 kg

DRUGS (1)
  1. MS CONTIN [Suspect]
     Active Substance: MORPHINE SULFATE
     Indication: Analgesic therapy
     Dosage: 30 MG, BID
     Route: 048
     Dates: start: 20210909, end: 20211017

REACTIONS (4)
  - Death [Fatal]
  - Coma [Unknown]
  - Respiratory depression [Unknown]
  - Vomiting [Unknown]

NARRATIVE: CASE EVENT DATE: 20211017
